FAERS Safety Report 6859497-X (Version None)
Quarter: 2010Q3

REPORT INFORMATION
  Report Type: 
  Country: None (occurrence: None)
  Receive Date: 20100719
  Receipt Date: 20080303
  Transmission Date: 20110219
  Serious: No
  Sender: FDA-Public Use
  Company Number: US-PFIZER INC-2008019904

PATIENT
  Sex: Female
  Weight: 83.9 kg

DRUGS (3)
  1. CHANTIX [Suspect]
     Indication: SMOKING CESSATION THERAPY
     Dates: start: 20080219, end: 20080226
  2. LISINOPRIL AND HYDROCHLOROTHIAZIDE [Concomitant]
  3. ANTI-SMOKING AGENTS [Concomitant]

REACTIONS (1)
  - ABNORMAL DREAMS [None]
